FAERS Safety Report 25846998 (Version 3)
Quarter: 2025Q4

REPORT INFORMATION
  Report Type: Spontaneous
  Country: US (occurrence: US)
  Receive Date: 20250925
  Receipt Date: 20251218
  Transmission Date: 20260118
  Serious: No
  Sender: NOVARTIS
  Company Number: US-002147023-NVSC2025US143661

PATIENT
  Sex: Female

DRUGS (1)
  1. COSENTYX [Suspect]
     Active Substance: SECUKINUMAB
     Indication: Product used for unknown indication
     Dosage: 300 MG (INJECTION)
     Route: 050

REACTIONS (4)
  - Device failure [Unknown]
  - Device issue [Unknown]
  - Accidental exposure to product [Unknown]
  - Product storage error [Unknown]
